FAERS Safety Report 5446034-X (Version None)
Quarter: 2007Q3

REPORT INFORMATION
  Report Type: 
  Country: None (occurrence: None)
  Receive Date: 20070907
  Receipt Date: 20070829
  Transmission Date: 20080115
  Serious: Yes (Other)
  Sender: FDA-Public Use
  Company Number: US-ELI_LILLY_AND_COMPANY-US200707004143

PATIENT
  Sex: Male

DRUGS (1)
  1. HUMATROPE [Suspect]
     Indication: PITUITARY INFARCTION
     Dosage: 1.6 MG, UNKNOWN

REACTIONS (5)
  - CONVULSION [None]
  - DYSKINESIA [None]
  - FALL [None]
  - HEAD INJURY [None]
  - HEADACHE [None]
